FAERS Safety Report 7593650-5 (Version None)
Quarter: 2011Q3

REPORT INFORMATION
  Report Type: 
  Country: None (occurrence: None)
  Receive Date: 20110706
  Receipt Date: 20110701
  Transmission Date: 20111222
  Serious: Yes (Death, Hospitalization)
  Sender: FDA-Public Use
  Company Number: PHHY2009DE68655

PATIENT
  Sex: Female
  Weight: 73 kg

DRUGS (4)
  1. SOMAVERT [Concomitant]
     Indication: ACROMEGALY
     Dosage: 20 MG, DAILY
     Route: 058
  2. SANDOSTATIN LAR [Suspect]
     Indication: ACROMEGALY
     Dosage: 10 MG, UNK
     Route: 030
     Dates: start: 20090101
  3. PREDNISOLONE [Concomitant]
     Indication: HYPOPITUITARISM
     Dosage: 10 MG/ DAY
     Route: 048
  4. LEVOTHYROXINE SODIUM [Concomitant]
     Indication: HYPOPITUITARISM
     Dosage: 75 UG PER DAY
     Route: 048

REACTIONS (3)
  - THALAMIC INFARCTION [None]
  - CEREBROVASCULAR ACCIDENT [None]
  - DISORIENTATION [None]
